FAERS Safety Report 6073964-0 (Version None)
Quarter: 2009Q1

REPORT INFORMATION
  Report Type: 
  Country: None (occurrence: None)
  Receive Date: 20090211
  Receipt Date: 20090204
  Transmission Date: 20090719
  Serious: Yes (Other)
  Sender: FDA-Public Use
  Company Number: PHHY2009CA04459

PATIENT
  Sex: Female

DRUGS (1)
  1. FEMARA [Suspect]
     Dosage: UNK
     Dates: start: 20070901, end: 20080901

REACTIONS (5)
  - ARTHRALGIA [None]
  - BACK PAIN [None]
  - GAIT DISTURBANCE [None]
  - PAIN IN EXTREMITY [None]
  - SCIATICA [None]
